FAERS Safety Report 10250942 (Version 1)
Quarter: 2014Q2

REPORT INFORMATION
  Report Type: Report from Study
  Country: US (occurrence: US)
  Receive Date: 20140620
  Receipt Date: 20140620
  Transmission Date: 20141212
  Serious: Yes (Death)
  Sender: FDA-Public Use
  Company Number: US-BAXTER-2014BAX033883

PATIENT
  Sex: 0

DRUGS (1)
  1. CEFEPIME INJECTION [Suspect]
     Indication: EVIDENCE BASED TREATMENT
     Dosage: 1-2 G
     Route: 065

REACTIONS (1)
  - Death [Fatal]
